FAERS Safety Report 7372186 (Version 2)
Quarter: 2014Q2

REPORT INFORMATION
  Report Type: Spontaneous
  Country: US (occurrence: US)
  Receive Date: 20100430
  Receipt Date: 20140507
  Transmission Date: 20141212
  Serious: Yes (Hospitalization)
  Sender: FDA-Public Use
  Company Number: US-JNJFOC-20100406268

PATIENT
  Age: 81 Year
  Sex: Female
  Weight: 85.73 kg

DRUGS (3)
  1. REMICADE [Suspect]
     Indication: PUSTULAR PSORIASIS
     Route: 042
     Dates: start: 20100420
  2. REMICADE [Suspect]
     Indication: PUSTULAR PSORIASIS
     Route: 042
     Dates: start: 200909
  3. DITROPAN [Concomitant]
     Indication: BLADDER DISORDER
     Dates: start: 2008

REACTIONS (4)
  - Knee arthroplasty [Recovered/Resolved]
  - Trismus [Not Recovered/Not Resolved]
  - Infusion related reaction [Recovered/Resolved]
  - Throat tightness [Recovered/Resolved]
